FAERS Safety Report 8198580 (Version 4)
Quarter: 2013Q2

REPORT INFORMATION
  Report Type: Spontaneous
  Country: FR (occurrence: FR)
  Receive Date: 20111025
  Receipt Date: 20130429
  Transmission Date: 20140414
  Serious: Yes (Other)
  Sender: FDA-Public Use
  Company Number: FR-ROCHE-779522

PATIENT
  Age: 64 Year
  Sex: Female
  Weight: 71 kg

DRUGS (19)
  1. MABTHERA [Suspect]
     Indication: RHEUMATOID ARTHRITIS
     Dosage: FORM: INFUSION
     Route: 042
     Dates: start: 20110420, end: 20110504
  2. CORTANCYL [Concomitant]
     Indication: RHEUMATOID ARTHRITIS
     Route: 048
  3. DOLIPRANE [Concomitant]
     Indication: RHEUMATOID ARTHRITIS
     Route: 048
  4. VOLTAREN [Concomitant]
     Dosage: ONE TABLET IN THE MORNING AND ONE IN EVENING
     Route: 048
  5. CONTRAMAL [Concomitant]
     Dosage: STRENGHT 100 LP; FREQUNCY REPORTED 1-2 TABLET DAILY.
     Route: 048
  6. CARDENSIEL [Concomitant]
     Indication: HYPERTENSION
     Dosage: STRENGTH REPORTED AS 2.5,
     Route: 048
  7. LOGIRENE [Concomitant]
     Indication: HYPERTENSION
     Dosage: DOSE REPORTED AS 1.5 TABLETS DAILY
     Route: 048
  8. LEVOTHYROX [Concomitant]
     Indication: HYPOTHYROIDISM
  9. IMOVANE [Concomitant]
  10. TEMESTA [Concomitant]
     Dosage: STRENGTH:2.5
     Route: 065
  11. UVEDOSE [Concomitant]
     Route: 065
  12. DIOSMIN [Concomitant]
  13. LARMABAK [Concomitant]
     Dosage: 3 DROPS DAILY
     Route: 065
  14. KALEORID [Concomitant]
     Dosage: STRENGTH:1000
     Route: 065
  15. INEXIUM [Concomitant]
  16. OSTRAM [Concomitant]
     Dosage: STRENGTH:0.6
     Route: 065
  17. COLPOTROPHINE [Concomitant]
     Dosage: FREQUENCY : ONE TIME WEEKLY.
     Route: 065
  18. NAABAK [Concomitant]
     Dosage: FREQUENCY:3 DROPS DAILY
     Route: 065
  19. DUPHALAC [Concomitant]
     Dosage: ONE SACHET DAILY
     Route: 065

REACTIONS (2)
  - Hypoaesthesia [Recovering/Resolving]
  - Peripheral sensorimotor neuropathy [Not Recovered/Not Resolved]
